FAERS Safety Report 9980309 (Version 1)
Quarter: 2014Q1

REPORT INFORMATION
  Report Type: Spontaneous
  Country: US (occurrence: None)
  Receive Date: 20140305
  Receipt Date: 20140305
  Transmission Date: 20141002
  Serious: Yes (Disabling)
  Sender: FDA-Public Use
  Company Number: None

PATIENT
  Age: 34 Year
  Sex: Female

DRUGS (2)
  1. TOPIRAMATE 25MG GLENMARK PHARMACEUTICALS [Suspect]
     Indication: MIGRAINE PROPHYLAXIS
     Dosage: 1 BID ORAL
     Dates: start: 20140217, end: 20140225
  2. SUMATRIPTAN [Concomitant]

REACTIONS (3)
  - Feeling abnormal [None]
  - Glaucoma [None]
  - Visual acuity reduced [None]
